FAERS Safety Report 8501624-2 (Version None)
Quarter: 2012Q3

REPORT INFORMATION
  Report Type: 
  Country: None (occurrence: None)
  Receive Date: 20120711
  Receipt Date: 20120705
  Transmission Date: 20120928
  Serious: Yes (Other)
  Sender: FDA-Public Use
  Company Number: US-AMGEN-USASP2012041659

PATIENT
  Age: 39 Year
  Sex: Female

DRUGS (1)
  1. ENBREL [Suspect]
     Indication: RHEUMATOID ARTHRITIS
     Dosage: 50 MG, QWK
     Dates: start: 20120608

REACTIONS (7)
  - DIZZINESS POSTURAL [None]
  - PRURITUS [None]
  - SKIN STRIAE [None]
  - MEMORY IMPAIRMENT [None]
  - HEADACHE [None]
  - ERYTHEMA [None]
  - SKIN SWELLING [None]
